FAERS Safety Report 7240323-4 (Version None)
Quarter: 2011Q1

REPORT INFORMATION
  Report Type: 
  Country: None (occurrence: None)
  Receive Date: 20110124
  Receipt Date: 20110114
  Transmission Date: 20110831
  Serious: Yes (Hospitalization)
  Sender: FDA-Public Use
  Company Number: US-JNJFOC-20110104349

PATIENT
  Age: 64 Year
  Sex: Female
  Weight: 65 kg

DRUGS (11)
  1. KETOCONAZOLE [Interacting]
     Indication: NEOPLASM
     Route: 048
  2. IBUPROFEN [Concomitant]
     Indication: CANCER PAIN
     Route: 065
  3. ONDANSETRON [Concomitant]
     Indication: NAUSEA
     Route: 065
  4. METOPROLOL [Concomitant]
     Indication: HYPERTENSION
     Route: 065
  5. RANITIDINE HYDROCHLORIDE [Concomitant]
     Indication: GASTROOESOPHAGEAL REFLUX DISEASE
     Route: 065
  6. SENNA ALEXANDRINA [Concomitant]
     Indication: CONSTIPATION
     Route: 065
  7. ABT-869 (LINIFANIB) [Suspect]
     Indication: NEOPLASM
     Route: 048
  8. HYDROCODONE [Concomitant]
     Indication: CANCER PAIN
     Route: 065
  9. CENTRUM MULTIVITAMINS [Concomitant]
     Indication: VITAMIN SUPPLEMENTATION
     Route: 048
  10. FENTANYL TRANSDERMAL SYSTEM [Suspect]
     Indication: CANCER PAIN
     Route: 062
  11. DOCUSATE SODIUM [Concomitant]
     Indication: CONSTIPATION
     Route: 065

REACTIONS (7)
  - IMPAIRED GASTRIC EMPTYING [None]
  - DRUG INTERACTION [None]
  - OFF LABEL USE [None]
  - METASTATIC PAIN [None]
  - SPINAL COLUMN STENOSIS [None]
  - DEHYDRATION [None]
  - METASTATIC NEOPLASM [None]
